FAERS Safety Report 10520653 (Version 1)
Quarter: 2014Q4

REPORT INFORMATION
  Report Type: Spontaneous
  Country: US (occurrence: US)
  Receive Date: 20141015
  Receipt Date: 20141015
  Transmission Date: 20150528
  Serious: No
  Sender: FDA-Public Use
  Company Number: US-PFIZER INC-2014283461

PATIENT
  Sex: Female

DRUGS (8)
  1. CELEBREX [Suspect]
     Active Substance: CELECOXIB
     Dosage: UNK
  2. L-THEANINE [Concomitant]
     Active Substance: DIETARY SUPPLEMENT
     Dosage: UNK
  3. RAMIPRIL. [Concomitant]
     Active Substance: RAMIPRIL
     Dosage: UNK
  4. VITAMIN C [Concomitant]
     Active Substance: ASCORBIC ACID
     Dosage: UNK
  5. MULTIVITAMINS [Concomitant]
     Active Substance: VITAMINS
     Dosage: UNK
  6. MELATONIN [Concomitant]
     Active Substance: MELATONIN
     Dosage: UNK
  7. CALCIUM [Concomitant]
     Active Substance: CALCIUM
     Dosage: UNK
  8. VITAMIN D [Concomitant]
     Active Substance: CHOLECALCIFEROL
     Dosage: UNK

REACTIONS (1)
  - Drug hypersensitivity [Unknown]
